FAERS Safety Report 5044476-8 (Version None)
Quarter: 2006Q3

REPORT INFORMATION
  Report Type: 
  Country: None (occurrence: None)
  Receive Date: 20060706
  Receipt Date: 20060412
  Transmission Date: 20061208
  Serious: Yes (Hospitalization)
  Sender: FDA-Public Use
  Company Number: IT-GLAXOSMITHKLINE-B0421029A

PATIENT
  Age: 31 Year
  Sex: Female

DRUGS (1)
  1. AUGMENTIN '125' [Suspect]
     Indication: COUGH
     Dosage: 1G TWICE PER DAY
     Route: 048
     Dates: start: 20060324, end: 20060327

REACTIONS (2)
  - DERMATITIS ALLERGIC [None]
  - RASH MACULO-PAPULAR [None]
